FAERS Safety Report 23701050 (Version 5)
Quarter: 2024Q3

REPORT INFORMATION
  Report Type: Report from Study
  Country: DE (occurrence: DE)
  Receive Date: 20240403
  Receipt Date: 20240705
  Transmission Date: 20241017
  Serious: Yes (Hospitalization)
  Sender: JOHNSON AND JOHNSON
  Company Number: DE-JNJFOC-20240384378

PATIENT
  Age: 39 Year
  Sex: Female
  Weight: 54.3 kg

DRUGS (3)
  1. ESKETAMINE [Suspect]
     Active Substance: ESKETAMINE
     Indication: Depression
     Dosage: 28 MG (1 DEVICE)
     Dates: start: 20240325, end: 20240325
  2. ESKETAMINE [Suspect]
     Active Substance: ESKETAMINE
     Dosage: 56 MG (2 DEVICE)
     Dates: start: 20240328, end: 20240328
  3. ESKETAMINE [Suspect]
     Active Substance: ESKETAMINE
     Dosage: 56 MG (2 DEVICE)
     Dates: start: 20240402, end: 20240402

REACTIONS (3)
  - Suicidal ideation [Not Recovered/Not Resolved]
  - Blood pressure increased [Recovered/Resolved]
  - Hypertension [Recovered/Resolved]

NARRATIVE: CASE EVENT DATE: 20240325
